FAERS Safety Report 23154289 (Version 1)
Quarter: 2023Q4

REPORT INFORMATION
  Report Type: Spontaneous
  Country: US (occurrence: US)
  Receive Date: 20231107
  Receipt Date: 20231107
  Transmission Date: 20240110
  Serious: No
  Sender: FDA-Public Use
  Company Number: US-AMGEN-USASP2023194854

PATIENT
  Sex: Female

DRUGS (1)
  1. REPATHA [Suspect]
     Active Substance: EVOLOCUMAB
     Indication: Product used for unknown indication
     Dosage: 140 MILLIGRAM
     Route: 065
     Dates: start: 202308, end: 202308

REACTIONS (5)
  - Muscular weakness [Unknown]
  - Lethargy [Unknown]
  - Discomfort [Unknown]
  - Arthropathy [Unknown]
  - Dysstasia [Unknown]

NARRATIVE: CASE EVENT DATE: 20230801
